FAERS Safety Report 14255028 (Version 2)
Quarter: 2017Q4

REPORT INFORMATION
  Report Type: Spontaneous
  Country: JP (occurrence: JP)
  Receive Date: 20171206
  Receipt Date: 20171214
  Transmission Date: 20180321
  Serious: Yes (Hospitalization, Other)
  Sender: FDA-Public Use
  Company Number: PHJP2017JP035429

PATIENT
  Age: 62 Year
  Sex: Male

DRUGS (7)
  1. GLICLAZIDE [Concomitant]
     Active Substance: GLICLAZIDE
     Indication: DIABETES MELLITUS
     Dosage: UNK
     Route: 065
  2. ZYKADIA [Suspect]
     Active Substance: CERITINIB
     Indication: NON-SMALL CELL LUNG CANCER
     Dosage: 750 MG, UNK
     Route: 048
  3. ALECTINIB. [Concomitant]
     Active Substance: ALECTINIB
     Indication: NON-SMALL CELL LUNG CANCER
     Dosage: UNK
     Route: 048
  4. LAFUTIDINE [Concomitant]
     Active Substance: LAFUTIDINE
     Indication: PRODUCT USED FOR UNKNOWN INDICATION
     Dosage: UNK
     Route: 065
  5. ZYKADIA [Suspect]
     Active Substance: CERITINIB
     Indication: LUNG CARCINOMA CELL TYPE UNSPECIFIED STAGE IV
     Dosage: 600 MG, UNK
     Route: 048
  6. LAF237 [Suspect]
     Active Substance: VILDAGLIPTIN
     Indication: DIABETES MELLITUS
     Dosage: UNK
     Route: 048
  7. CRIZOTINIB [Concomitant]
     Active Substance: CRIZOTINIB
     Indication: NON-SMALL CELL LUNG CANCER
     Dosage: UNK
     Route: 048

REACTIONS (12)
  - Gamma-glutamyltransferase increased [Recovering/Resolving]
  - Lung carcinoma cell type unspecified stage IV [Unknown]
  - Liver disorder [Unknown]
  - Metastases to liver [Unknown]
  - Alanine aminotransferase increased [Recovering/Resolving]
  - Metastases to central nervous system [Unknown]
  - Diarrhoea [Recovering/Resolving]
  - Aspartate aminotransferase increased [Recovering/Resolving]
  - Malignant neoplasm progression [Unknown]
  - Lymphadenopathy [Unknown]
  - Erythema [Recovering/Resolving]
  - Nausea [Recovering/Resolving]
